FAERS Safety Report 4294293-1 (Version None)
Quarter: 2004Q1

REPORT INFORMATION
  Report Type: 
  Country: None (occurrence: None)
  Receive Date: 20040211
  Receipt Date: 20040129
  Transmission Date: 20041129
  Serious: Yes (Life-Threatening, Hospitalization)
  Sender: FDA-Public Use
  Company Number: 04H-062-0249518-00

PATIENT
  Age: 49 Year
  Sex: Male

DRUGS (8)
  1. METHYLPREDNISOLONE SODIUM SUCCINATE [Suspect]
     Dosage: 6MG
  2. KINERET [Suspect]
     Indication: RHEUMATOID ARTHRITIS
     Dosage: 100 MG, DAILY, SUBCUTANEOUS
     Route: 058
     Dates: start: 20021108, end: 20030720
  3. METHOTREXATE [Suspect]
     Dates: end: 20030701
  4. SULFASALAZINE [Suspect]
  5. PROGLUMETACIN MALEATE [Concomitant]
  6. LACTULOSE [Concomitant]
  7. CALCIUM GLUBIONATE [Concomitant]
  8. OMEPRAZOLE [Concomitant]

REACTIONS (9)
  - ABSCESS [None]
  - ARTHRITIS BACTERIAL [None]
  - BURSITIS [None]
  - DIALYSIS [None]
  - IMPLANT SITE INFECTION [None]
  - LUNG INFECTION PSEUDOMONAL [None]
  - RENAL FAILURE ACUTE [None]
  - RETROPERITONEAL HAEMORRHAGE [None]
  - SEPSIS [None]
